FAERS Safety Report 7149375-3 (Version None)
Quarter: 2010Q4

REPORT INFORMATION
  Report Type: 
  Country: None (occurrence: None)
  Receive Date: 20101209
  Receipt Date: 20100909
  Transmission Date: 20110411
  Serious: No
  Sender: FDA-Public Use
  Company Number: US-KINGPHARMUSA00001-K201001140

PATIENT
  Sex: Male

DRUGS (3)
  1. EMBEDA [Suspect]
     Dosage: 50 MG, UNK
  2. EMBEDA [Suspect]
     Dosage: 30 MG, UNK
  3. EMBEDA [Suspect]
     Dosage: UNK

REACTIONS (1)
  - AMNESIA [None]
